FAERS Safety Report 7008400-0 (Version None)
Quarter: 2010Q3

REPORT INFORMATION
  Report Type: 
  Country: None (occurrence: None)
  Receive Date: 20100922
  Receipt Date: 20100913
  Transmission Date: 20110219
  Serious: Yes (Hospitalization)
  Sender: FDA-Public Use
  Company Number: B0674219A

PATIENT
  Sex: Female

DRUGS (6)
  1. ZANTAC [Suspect]
     Indication: PREMEDICATION
     Dosage: 25MG PER DAY
     Route: 042
     Dates: start: 20100805, end: 20100805
  2. ZOFRAN [Suspect]
     Indication: PREMEDICATION
     Dosage: 8MG PER DAY
     Route: 042
     Dates: start: 20100805, end: 20100805
  3. PACLITAXEL [Suspect]
     Indication: OVARIAN CANCER
     Dosage: 120MG SINGLE DOSE
     Route: 042
     Dates: start: 20100805, end: 20100805
  4. METHYLPREDNISOLONE [Suspect]
     Indication: PREMEDICATION
     Dosage: 60MG SINGLE DOSE
     Route: 042
     Dates: start: 20100805, end: 20100805
  5. CARBOPLATIN [Suspect]
     Indication: OVARIAN CANCER
     Route: 042
     Dates: start: 20100805, end: 20100805
  6. POLARAMINE [Concomitant]
     Indication: PREMEDICATION
     Dosage: 5MG SINGLE DOSE
     Route: 042
     Dates: start: 20100805, end: 20100805

REACTIONS (2)
  - PARAESTHESIA [None]
  - PRURITUS [None]
